FAERS Safety Report 13026691 (Version 1)
Quarter: 2016Q4

REPORT INFORMATION
  Report Type: Spontaneous
  Country: PT (occurrence: PT)
  Receive Date: 20161214
  Receipt Date: 20161214
  Transmission Date: 20170207
  Serious: Yes (Death, Hospitalization, Other)
  Sender: FDA-Public Use
  Company Number: PT-BAYER-2016-230285

PATIENT
  Age: 85 Year
  Sex: Female

DRUGS (1)
  1. ACETYLSALICYLIC ACID (} 100 MG) [Suspect]
     Active Substance: ASPIRIN
     Dosage: UNK

REACTIONS (5)
  - Prinzmetal angina [Fatal]
  - Acute respiratory failure [None]
  - Cardiac failure [None]
  - Hypotension [None]
  - Tracheobronchitis [None]
